FAERS Safety Report 23836147 (Version 1)
Quarter: 2024Q2

REPORT INFORMATION
  Report Type: Spontaneous
  Country: BE (occurrence: BE)
  Receive Date: 20240509
  Receipt Date: 20240509
  Transmission Date: 20240716
  Serious: Yes (Disabling)
  Sender: FDA-Public Use
  Company Number: None

PATIENT
  Sex: Female

DRUGS (6)
  1. TRAZODONE [Suspect]
     Active Substance: TRAZODONE HYDROCHLORIDE
     Indication: Poor quality sleep
     Dosage: 1 OF 1/2 TABLET, TRAZODONE TEVA
     Route: 048
  2. DESLORATADINE [Suspect]
     Active Substance: DESLORATADINE
     Indication: Seasonal allergy
     Dosage: 1X PER DAY
     Route: 048
  3. VITAMIN D [Suspect]
     Active Substance: VITAMIN D NOS
     Indication: Vitamin D deficiency
     Dosage: 1 XEVERY 14 DAYS, VITAMIN D WILL
     Route: 048
  4. DIENOGEST\ESTRADIOL VALERATE [Suspect]
     Active Substance: DIENOGEST\ESTRADIOL VALERATE
     Indication: Menopause
     Dosage: 1 PER DAY, LACLIMELLA 1 MG/2 MG
     Route: 048
     Dates: start: 20220101
  5. FENOTEROL HYDROBROMIDE [Suspect]
     Active Substance: FENOTEROL HYDROBROMIDE
     Indication: Chronic obstructive pulmonary disease
     Dosage: ONCE A DAY. REPEAT WHEN NECESSARY, DUOVENT 0.5 MG/1.25 MG/4 ML
     Route: 048
  6. FLUTICASONE FUROATE\VILANTEROL TRIFENATATE [Suspect]
     Active Substance: FLUTICASONE FUROATE\VILANTEROL TRIFENATATE
     Indication: Chronic obstructive pulmonary disease
     Dosage: 1X PER DAY, RELVAR ELLIPTA 92 MICROGRAMS/22 MICROGRAMS  PRE-DISPENSED
     Route: 048

REACTIONS (1)
  - Respiratory tract infection fungal [Not Recovered/Not Resolved]

NARRATIVE: CASE EVENT DATE: 20230101
